FAERS Safety Report 14969844 (Version 1)
Quarter: 2018Q2

REPORT INFORMATION
  Report Type: Spontaneous
  Country: BE (occurrence: BE)
  Receive Date: 20180604
  Receipt Date: 20180604
  Transmission Date: 20180711
  Serious: Yes (Life-Threatening, Hospitalization, Disabling, Other)
  Sender: FDA-Public Use
  Company Number: IND-BE-009507513-1804BEL000367

PATIENT
  Sex: Male
  Weight: 62 kg

DRUGS (4)
  1. OMEPRAZOLE. [Concomitant]
     Active Substance: OMEPRAZOLE
     Indication: PROPHYLAXIS AGAINST GASTROINTESTINAL ULCER
     Dosage: 20 MG, UNK
     Route: 048
     Dates: start: 20180313
  2. ARCOXIA [Suspect]
     Active Substance: ETORICOXIB
     Dosage: 120 MG, QD
     Route: 048
     Dates: start: 20180306, end: 20180312
  3. CALCIUM (UNSPECIFIED) (+) VITAMIN D (UNSPECIFIED) [Concomitant]
     Active Substance: CALCIUM CARBONATE\VITAMIN D
     Indication: OSTEOPOROSIS PROPHYLAXIS
     Dosage: 1000/880 (UNITS NOT PROVIDED)
     Route: 048
     Dates: start: 20180313
  4. MEDROL [Concomitant]
     Active Substance: METHYLPREDNISOLONE
     Indication: PROPHYLAXIS AGAINST GASTROINTESTINAL ULCER
     Dosage: 32 MG, UNK
     Route: 048
     Dates: start: 20180313

REACTIONS (2)
  - Myocardial infarction [Recovered/Resolved]
  - Cardiac arrest [Recovered/Resolved]

NARRATIVE: CASE EVENT DATE: 20180318
